FAERS Safety Report 19229011 (Version 1)
Quarter: 2021Q2

REPORT INFORMATION
  Report Type: Spontaneous
  Country: US (occurrence: US)
  Receive Date: 20210506
  Receipt Date: 20210506
  Transmission Date: 20210717
  Serious: No
  Sender: FDA-Public Use
  Company Number: US-ANIPHARMA-2020-US-022396

PATIENT
  Age: 69 Year
  Sex: Female
  Weight: 65.77 kg

DRUGS (7)
  1. ENSURE [Concomitant]
     Active Substance: AMINO ACIDS\DEXTROSE\ELECTROLYTES NOS\SOYBEAN OIL\VITAMINS
     Route: 065
  2. ATIVAN [Concomitant]
     Active Substance: LORAZEPAM
     Route: 065
     Dates: start: 1990
  3. VITAMIN C [Concomitant]
     Active Substance: ASCORBIC ACID
     Route: 065
  4. ADVIL [Concomitant]
     Active Substance: IBUPROFEN
     Dosage: PRN
     Route: 065
  5. SYNTHROID [Concomitant]
     Active Substance: LEVOTHYROXINE SODIUM
     Route: 065
  6. CANDESARTAN CILEXETIL TABLETS [Suspect]
     Active Substance: CANDESARTAN CILEXETIL
     Indication: HYPERTENSION
     Dosage: ONE A DAY, BUT NOT CONSISTENTLY
     Route: 048
     Dates: start: 202008, end: 20201030
  7. VITAMIN D [Suspect]
     Active Substance: VITAMIN D NOS
     Dosage: 2500
     Route: 065

REACTIONS (3)
  - Intentional product misuse [Recovered/Resolved]
  - Product dose omission issue [Recovered/Resolved]
  - Tinnitus [Recovered/Resolved]

NARRATIVE: CASE EVENT DATE: 202008
